FAERS Safety Report 8418946-6 (Version None)
Quarter: 2012Q2

REPORT INFORMATION
  Report Type: 
  Country: None (occurrence: None)
  Receive Date: 20120607
  Receipt Date: 20120530
  Transmission Date: 20120825
  Serious: Yes (Other)
  Sender: FDA-Public Use
  Company Number: PHHY2012JP048306

PATIENT
  Age: 69 Year
  Sex: Male

DRUGS (3)
  1. SANDOSTATIN LAR [Suspect]
     Indication: ACROMEGALY
     Dosage: 20 MG, QMO
     Route: 030
  2. LEVOTHYROXINE SODIUM [Concomitant]
     Indication: HYPOTHYROIDISM
  3. CORTRIL [Concomitant]
     Indication: ADRENAL INSUFFICIENCY

REACTIONS (7)
  - HYPOTHYROIDISM [None]
  - ALTERED STATE OF CONSCIOUSNESS [None]
  - HYPERGLYCAEMIA [None]
  - ADRENAL INSUFFICIENCY [None]
  - PITUITARY TUMOUR BENIGN [None]
  - DRUG EFFECT DECREASED [None]
  - PYREXIA [None]
